FAERS Safety Report 19827627 (Version 2)
Quarter: 2021Q3

REPORT INFORMATION
  Report Type: Spontaneous
  Country: CN (occurrence: CN)
  Receive Date: 20210914
  Receipt Date: 20210916
  Transmission Date: 20211014
  Serious: Yes (Hospitalization, Other)
  Sender: FDA-Public Use
  Company Number: CN-VIIV HEALTHCARE LIMITED-CN2021APC191079

PATIENT
  Age: 63 Year
  Sex: Male
  Weight: 70 kg

DRUGS (11)
  1. ENTECAVIR. [Suspect]
     Active Substance: ENTECAVIR
     Dosage: 1 G, QD
     Dates: start: 20160218
  2. ENTECAVIR. [Suspect]
     Active Substance: ENTECAVIR
     Indication: ANTIVIRAL TREATMENT
     Dosage: 10 MG/WEEK
     Dates: start: 201409, end: 201503
  3. ADEFOVIR DIPIVOXIL. [Suspect]
     Active Substance: ADEFOVIR DIPIVOXIL
     Dosage: 10 MG, EVERY OTHER DAY, WHICH CONTINUED TO BE REDUCED TO 10MG/WEEK
     Dates: start: 201308
  4. ADEFOVIR DIPIVOXIL. [Suspect]
     Active Substance: ADEFOVIR DIPIVOXIL
     Dosage: 10 MG/WEEK
     Dates: start: 201409, end: 201503
  5. ENTECAVIR. [Suspect]
     Active Substance: ENTECAVIR
     Dosage: 1 G, QD
  6. TELBIVUDINE [Suspect]
     Active Substance: TELBIVUDINE
     Indication: ANTIVIRAL TREATMENT
     Dosage: 600 MG, QD
     Dates: start: 201704
  7. LAMIVUDINE HBV [Suspect]
     Active Substance: LAMIVUDINE
     Indication: ANTIVIRAL TREATMENT
     Dosage: 0.1 G, QD
     Route: 048
     Dates: start: 200205
  8. TENOFOVIR DISOPROXIL FUMARATE. [Suspect]
     Active Substance: TENOFOVIR DISOPROXIL FUMARATE
     Indication: ANTIVIRAL TREATMENT
     Dosage: 300 MG EVERY OTHER DAY
  9. ENTECAVIR. [Suspect]
     Active Substance: ENTECAVIR
     Indication: HEPATITIS B
     Dosage: 1 G, QD
     Dates: start: 200804
  10. ADEFOVIR DIPIVOXIL. [Suspect]
     Active Substance: ADEFOVIR DIPIVOXIL
     Indication: HEPATITIS B
     Dosage: 10 MG, QD
     Dates: start: 2004, end: 201503
  11. ENTECAVIR. [Suspect]
     Active Substance: ENTECAVIR
     Dosage: UNK
     Dates: start: 201704

REACTIONS (7)
  - Blood creatine increased [Recovering/Resolving]
  - Blood creatine phosphokinase increased [Recovering/Resolving]
  - Drug resistance [Unknown]
  - Glomerulonephritis [Recovering/Resolving]
  - Hepatic cirrhosis [Recovering/Resolving]
  - Renal injury [Recovering/Resolving]
  - Pathogen resistance [Unknown]
